FAERS Safety Report 8494416-4 (Version None)
Quarter: 2012Q3

REPORT INFORMATION
  Report Type: 
  Country: None (occurrence: None)
  Receive Date: 20120709
  Receipt Date: 20120628
  Transmission Date: 20120928
  Serious: Yes (Other)
  Sender: FDA-Public Use
  Company Number: US-US-EMD SERONO, INC.-7108059

PATIENT
  Sex: Female
  Weight: 61 kg

DRUGS (8)
  1. PREDNISONE TAB [Suspect]
     Indication: RESPIRATORY DISORDER
     Dates: start: 20111001, end: 20111001
  2. CITRACAL [Concomitant]
     Indication: PRODUCT USED FOR UNKNOWN INDICATION
  3. TOPAMAX [Concomitant]
     Indication: MIGRAINE
  4. VITAMIN D [Concomitant]
     Indication: PRODUCT USED FOR UNKNOWN INDICATION
  5. MULTI-VITAMIN [Concomitant]
     Indication: PRODUCT USED FOR UNKNOWN INDICATION
  6. REBIF [Suspect]
     Indication: MULTIPLE SCLEROSIS
     Route: 058
     Dates: start: 20070601
  7. RELPAX [Concomitant]
     Indication: MIGRAINE
  8. SEASONALE [Concomitant]
     Indication: PRODUCT USED FOR UNKNOWN INDICATION
     Dosage: 0.15/30

REACTIONS (7)
  - LUMBOSACRAL PLEXUS LESION [None]
  - RESPIRATORY DISORDER [None]
  - INJECTION SITE PRURITUS [None]
  - INJECTION SITE PAIN [None]
  - INJECTION SITE ERYTHEMA [None]
  - RADICULOPATHY [None]
  - OSTEONECROSIS [None]
